FAERS Safety Report 7295929-3 (Version None)
Quarter: 2011Q1

REPORT INFORMATION
  Report Type: 
  Country: None (occurrence: None)
  Receive Date: 20110216
  Receipt Date: 20110214
  Transmission Date: 20110831
  Serious: Yes (Hospitalization)
  Sender: FDA-Public Use
  Company Number: US-AMGEN-US366727

PATIENT
  Age: 66 Year
  Sex: Female

DRUGS (18)
  1. CELEXA [Concomitant]
     Dosage: 60 MG, BID
     Route: 048
     Dates: start: 20091004, end: 20091017
  2. FENTANYL [Concomitant]
     Dosage: 175 A?G, BID
     Route: 062
     Dates: start: 20090904, end: 20091004
  3. DEXAMETHASONE [Concomitant]
     Dosage: 4 MG, QD
     Route: 048
     Dates: start: 20090904
  4. SENNA [Concomitant]
     Dosage: 5 ML, BID
     Route: 048
     Dates: start: 20090904
  5. MULTI-VITAMINS [Concomitant]
     Dosage: UNK UNK, QD
     Route: 048
     Dates: start: 20090904
  6. BRIMONIDINE TARTRATE [Concomitant]
     Dosage: 1 GTT, BID
     Route: 061
     Dates: start: 20090904
  7. FEXOFENADINE HCL [Concomitant]
     Dosage: 180 MG, QD
     Route: 048
     Dates: start: 20090904
  8. DORZOLAMIDE HYDROCHLORIDE AND TIMOLOL MALEATE [Concomitant]
     Dosage: 1 GTT, BID
     Route: 061
     Dates: start: 20090904
  9. CELEXA [Concomitant]
     Dosage: 30 MG, BID
     Route: 048
     Dates: start: 20090904, end: 20091004
  10. DOCUSATE SODIUM [Concomitant]
     Dosage: 10 ML, BID
     Route: 048
     Dates: start: 20090904
  11. FENTANYL [Concomitant]
     Dosage: 200 A?G, UNK
     Route: 062
     Dates: start: 20091004
  12. POTASSIUM CHLORIDE [Concomitant]
     Dosage: 10 MG, BID
     Route: 048
     Dates: start: 20090904
  13. LATANOPROST [Concomitant]
     Dosage: 1 GTT, QD
     Route: 061
     Dates: start: 20090904
  14. LEVOTHYROXINE SODIUM [Concomitant]
     Dosage: 100 A?G, QD
     Route: 048
     Dates: start: 20091004
  15. DORZOLAMIDE [Concomitant]
     Dosage: 1 GTT, QD
     Route: 061
     Dates: start: 20090904
  16. GLIMEPIRIDE [Concomitant]
     Dosage: 2 MG, BID
     Route: 048
     Dates: start: 20090904
  17. PANITUMUMAB [Suspect]
     Indication: SQUAMOUS CELL CARCINOMA
     Dosage: 9 MG/KG, Q3WK
     Route: 042
     Dates: start: 20090923
  18. OXYCODONE [Concomitant]
     Dosage: 10 MG, PRN
     Route: 048
     Dates: start: 20090904

REACTIONS (4)
  - INFECTION [None]
  - LYMPHOPENIA [None]
  - HYPERGLYCAEMIA [None]
  - MENTAL DISORDER [None]
